FAERS Safety Report 22202131 (Version 13)
Quarter: 2024Q1

REPORT INFORMATION
  Report Type: Spontaneous
  Country: US (occurrence: US)
  Receive Date: 20230412
  Receipt Date: 20240201
  Transmission Date: 20240410
  Serious: No
  Sender: FDA-Public Use
  Company Number: US-PFIZER INC-202300138124

PATIENT
  Age: 10 Year
  Sex: Male
  Weight: 24.947 kg

DRUGS (4)
  1. GENOTROPIN [Suspect]
     Active Substance: SOMATROPIN
     Indication: Growth hormone deficiency
     Dosage: 1.3 MG EVERY DAY EXCEPT TAKE 1 DAY OFF. 6 DAYS OUT OF 7
  2. GENOTROPIN [Suspect]
     Active Substance: SOMATROPIN
     Dosage: 1.2 MG + 1.4 MG, 6X/WEEK (REACH DOSE OF 1.3 MG)
     Dates: start: 202302
  3. GENOTROPIN [Suspect]
     Active Substance: SOMATROPIN
     Dosage: 1.4 MG, 1X/DAY
  4. GENOTROPIN [Suspect]
     Active Substance: SOMATROPIN
     Dosage: 1.6 MG
     Dates: start: 2023

REACTIONS (1)
  - Product prescribing error [Unknown]
